FAERS Safety Report 7482276-X (Version None)
Quarter: 2011Q2

REPORT INFORMATION
  Report Type: 
  Country: None (occurrence: None)
  Receive Date: 20110516
  Receipt Date: 20110509
  Transmission Date: 20111010
  Serious: No
  Sender: FDA-Public Use
  Company Number: US-PFIZER INC-2011071235

PATIENT
  Sex: Male
  Weight: 97.5 kg

DRUGS (8)
  1. ACETYLSALICYLIC ACID [Concomitant]
     Indication: ANTICOAGULANT THERAPY
     Dosage: 385 MG
  2. TAMSULOSIN HYDROCHLORIDE [Concomitant]
     Indication: CYSTITIS
  3. METOPROLOL [Concomitant]
     Indication: HYPERTENSION
     Dosage: 25 MG, UNK
  4. PEPCID [Concomitant]
     Indication: HYPERCHLORHYDRIA
     Dosage: UNK
  5. PLAVIX [Concomitant]
     Indication: ANTICOAGULANT THERAPY
     Dosage: UNK
  6. ZYVOX [Suspect]
     Indication: CATHETER SITE INFECTION
     Dosage: 600 MG, 2X/DAY
     Route: 048
     Dates: start: 20110304, end: 20110312
  7. TAMSULOSIN HYDROCHLORIDE [Concomitant]
     Indication: PROSTATOMEGALY
     Dosage: UNK
  8. LIPITOR [Concomitant]
     Indication: BLOOD CHOLESTEROL INCREASED
     Dosage: UNK

REACTIONS (6)
  - DYSGEUSIA [None]
  - SKIN ODOUR ABNORMAL [None]
  - FATIGUE [None]
  - OEDEMA PERIPHERAL [None]
  - JOINT SWELLING [None]
  - ASTHENIA [None]
